FAERS Safety Report 17366682 (Version 1)
Quarter: 2020Q1

REPORT INFORMATION
  Report Type: Report from Study
  Country: EG (occurrence: EG)
  Receive Date: 20200204
  Receipt Date: 20200204
  Transmission Date: 20200409
  Serious: Yes (Death, Life-Threatening, Hospitalization, Disabling, Other)
  Sender: FDA-Public Use
  Company Number: NVSC2020EG024956

PATIENT
  Age: 54 Year
  Sex: Female

DRUGS (1)
  1. TASIGNA [Suspect]
     Active Substance: NILOTINIB
     Indication: CHRONIC MYELOID LEUKAEMIA
     Dosage: 4 DF, QD (STOPPED 10 DAYS BEFORE DEATH)
     Route: 065
     Dates: start: 2015, end: 20190527

REACTIONS (11)
  - Cardiac valve disease [Unknown]
  - Osteoporosis [Unknown]
  - Gait inability [Unknown]
  - Vomiting [Fatal]
  - Mouth haemorrhage [Fatal]
  - Herpes zoster [Fatal]
  - Dysphagia [Fatal]
  - Platelet count decreased [Fatal]
  - Anaemia [Fatal]
  - Epistaxis [Fatal]
  - Oral herpes [Fatal]

NARRATIVE: CASE EVENT DATE: 2015
